FAERS Safety Report 25787495 (Version 1)
Quarter: 2025Q3

REPORT INFORMATION
  Report Type: Spontaneous
  Country: US (occurrence: US)
  Receive Date: 20250910
  Receipt Date: 20250910
  Transmission Date: 20251020
  Serious: No
  Sender: TEVA
  Company Number: US-TEVA-VS-3368216

PATIENT
  Age: 46 Year
  Sex: Female
  Weight: 61.235 kg

DRUGS (1)
  1. IBUPROFEN [Suspect]
     Active Substance: IBUPROFEN
     Indication: Haemorrhage
     Route: 065

REACTIONS (1)
  - Abdominal pain [Unknown]
